FAERS Safety Report 20449903 (Version 1)
Quarter: 2022Q1

REPORT INFORMATION
  Report Type: Spontaneous
  Country: US (occurrence: US)
  Receive Date: 20220209
  Receipt Date: 20220209
  Transmission Date: 20220424
  Serious: No
  Sender: FDA-Public Use
  Company Number: US-SANOFI-00961163

PATIENT
  Age: 54 Year
  Sex: Female

DRUGS (1)
  1. DUPIXENT [Suspect]
     Active Substance: DUPILUMAB
     Indication: Dermatitis atopic
     Dosage: 300 MG, QOW
     Route: 058
     Dates: start: 20201120, end: 20220202

REACTIONS (5)
  - Dysgeusia [Unknown]
  - Strabismus [Unknown]
  - Toxicity to various agents [Unknown]
  - Oral herpes [Unknown]
  - Unevaluable event [Unknown]
